FAERS Safety Report 4845738-7 (Version None)
Quarter: 2005Q4

REPORT INFORMATION
  Report Type: 
  Country: None (occurrence: None)
  Receive Date: 20051205
  Receipt Date: 20051205
  Transmission Date: 20060501
  Serious: Yes (Hospitalization)
  Sender: FDA-Public Use
  Company Number: None

PATIENT
  Sex: Female
  Weight: 65.318 kg

DRUGS (8)
  1. CARBAMAZEPINE [Suspect]
     Indication: EPILEPSY
     Dosage: 400 MG BID PO
     Route: 048
     Dates: start: 20050215, end: 20051103
  2. ASPIRIN [Concomitant]
  3. LOVASTATIN [Concomitant]
  4. CLONAZEPAM [Concomitant]
  5. FAMOTIDINE [Concomitant]
  6. FLUOXETINE [Concomitant]
  7. OLANZAPINE [Concomitant]
  8. TOLTERODINE ER [Concomitant]

REACTIONS (3)
  - CONFUSIONAL STATE [None]
  - HYPONATRAEMIA [None]
  - PITTING OEDEMA [None]
